FAERS Safety Report 6251984-0 (Version None)
Quarter: 2009Q2

REPORT INFORMATION
  Report Type: 
  Country: None (occurrence: None)
  Receive Date: 20090630
  Receipt Date: 20040420
  Transmission Date: 20091009
  Serious: Yes (Death)
  Sender: FDA-Public Use
  Company Number: US-ROCHE-638306

PATIENT
  Sex: Male

DRUGS (16)
  1. ENFUVIRTIDE [Suspect]
     Route: 065
     Dates: start: 20031124, end: 20040419
  2. SUSTIVA [Concomitant]
     Dosage: FREQUENCY: QD
     Dates: start: 19990501, end: 19991001
  3. ZIAGEN [Concomitant]
     Dates: start: 19990501, end: 19991001
  4. VIDEX [Concomitant]
     Dates: start: 19990620, end: 20001001
  5. ZERIT [Concomitant]
     Dates: start: 19990620, end: 20001001
  6. CRIXIVAN [Concomitant]
     Dates: start: 19991020, end: 20001201
  7. NORVIR [Concomitant]
     Dates: start: 19991020, end: 20001201
  8. NORVIR [Concomitant]
     Dates: start: 20001201, end: 20020601
  9. KALETRA [Concomitant]
     Dates: start: 20001020, end: 20020601
  10. EMTRIVA [Concomitant]
     Dosage: FREQUENCY: QD
     Dates: start: 20001201, end: 20020601
  11. VIREAD [Concomitant]
     Dosage: FREQUENCY: QD
     Dates: start: 20001201, end: 20020601
  12. EPIVIR [Concomitant]
     Dates: start: 20020618, end: 20040419
  13. REYATAZ [Concomitant]
     Dosage: FREQUENCY: QD
     Dates: start: 20020618, end: 20040419
  14. VIDEX EC [Concomitant]
     Dosage: FREQUENCY: QD
     Dates: start: 20020618, end: 20040419
  15. BACTRIM DS [Concomitant]
     Dosage: FREQUENCY: QD
     Dates: start: 19990630, end: 20040420
  16. ZITHROMAX [Concomitant]
     Dosage: FREQUENCY: QD
     Dates: start: 19990630, end: 19990705

REACTIONS (1)
  - DIARRHOEA [None]
